FAERS Safety Report 21706764 (Version 1)
Quarter: 2022Q4

REPORT INFORMATION
  Report Type: Spontaneous
  Country: DE (occurrence: DE)
  Receive Date: 20221209
  Receipt Date: 20221209
  Transmission Date: 20230113
  Serious: Yes (Other)
  Sender: FDA-Public Use
  Company Number: DE-PFIZER INC-PV202200116495

PATIENT
  Age: 37 Year
  Sex: Female

DRUGS (1)
  1. CYTOTEC [Suspect]
     Active Substance: MISOPROSTOL
     Dosage: 1 DF, AS NEEDED
     Dates: start: 201612, end: 201612

REACTIONS (5)
  - Precipitate labour [Recovered/Resolved]
  - Circulatory collapse [Recovered/Resolved]
  - Uterine rupture [Recovered/Resolved]
  - Procedural haemorrhage [Recovered/Resolved]
  - Off label use [Recovered/Resolved]

NARRATIVE: CASE EVENT DATE: 20161201
